FAERS Safety Report 4567155-X (Version None)
Quarter: 2005Q1

REPORT INFORMATION
  Report Type: 
  Country: None (occurrence: None)
  Receive Date: 20050201
  Receipt Date: 20031216
  Transmission Date: 20050727
  Serious: Yes (Other)
  Sender: FDA-Public Use
  Company Number: US-GLAXOSMITHKLINE-A0443827A

PATIENT
  Age: 37 Year
  Sex: Female
  Weight: 54.5 kg

DRUGS (1)
  1. PAXIL [Suspect]
     Indication: GENERALISED ANXIETY DISORDER
     Dosage: 30MG PER DAY
     Route: 048
     Dates: start: 20010528

REACTIONS (9)
  - DEPENDENCE [None]
  - DRUG WITHDRAWAL SYNDROME [None]
  - HALLUCINATION [None]
  - HOMICIDAL IDEATION [None]
  - MOTOR DYSFUNCTION [None]
  - NIGHTMARE [None]
  - PARAESTHESIA [None]
  - SUICIDAL IDEATION [None]
  - SWOLLEN TONGUE [None]
